FAERS Safety Report 14170662 (Version 1)
Quarter: 2017Q4

REPORT INFORMATION
  Report Type: Spontaneous
  Country: US (occurrence: US)
  Receive Date: 20171108
  Receipt Date: 20171108
  Transmission Date: 20180321
  Serious: Yes (Other)
  Sender: FDA-Public Use
  Company Number: US-GLAXOSMITHKLINE-US2017169240

PATIENT
  Age: 62 Year
  Sex: Female

DRUGS (5)
  1. LORATADINE. [Concomitant]
     Active Substance: LORATADINE
  2. FLUTICASONE PROPIONATE. [Concomitant]
     Active Substance: FLUTICASONE PROPIONATE
  3. VENTOLIN HFA [Suspect]
     Active Substance: ALBUTEROL SULFATE
     Indication: ACUTE SINUSITIS
     Dosage: 2 PUFF(S), UNK
     Route: 055
     Dates: start: 201709
  4. FLUTICASONE PROPIONATE. [Suspect]
     Active Substance: FLUTICASONE PROPIONATE
     Indication: DYSPNOEA
     Dosage: UNK
  5. PROZAC [Concomitant]
     Active Substance: FLUOXETINE HYDROCHLORIDE

REACTIONS (7)
  - Product use in unapproved indication [Unknown]
  - Asthma [Recovering/Resolving]
  - Bronchitis [Recovering/Resolving]
  - Wrong technique in product usage process [Unknown]
  - Dyspnoea [Recovering/Resolving]
  - Respiratory distress [Unknown]
  - Condition aggravated [Unknown]

NARRATIVE: CASE EVENT DATE: 201709
